FAERS Safety Report 16896537 (Version 1)
Quarter: 2019Q4

REPORT INFORMATION
  Report Type: Report from Study
  Country: US (occurrence: US)
  Receive Date: 20191008
  Receipt Date: 20191008
  Transmission Date: 20200122
  Serious: No
  Sender: FDA-Public Use
  Company Number: US-EMD SERONO-9108934

PATIENT
  Age: 34 Year
  Sex: Female

DRUGS (2)
  1. MAVENCLAD [Suspect]
     Active Substance: CLADRIBINE
     Indication: MULTIPLE SCLEROSIS
     Dosage: TWO TABLETS ON DAY 1 AND ONE TABLET ON THE REMAINING 4 DAYS
     Route: 048
     Dates: start: 20190726
  2. TYLENOL COLD + SINUS (ACETAMINOPHEN\CHLORPHENIRAMINE MALEATE\PSEUDOEPHEDRINE HYDROCHLORIDE) [Suspect]
     Active Substance: ACETAMINOPHEN\CHLORPHENIRAMINE MALEATE\PSEUDOEPHEDRINE HYDROCHLORIDE
     Indication: NASOPHARYNGITIS
     Dosage: TOOK AT BEDTIME AND AT 4 AM ON 31 JUL 2019
     Dates: start: 201907

REACTIONS (5)
  - Mydriasis [Unknown]
  - Paraesthesia [Unknown]
  - Viral upper respiratory tract infection [Unknown]
  - Speech disorder [Unknown]
  - Pruritus [Unknown]

NARRATIVE: CASE EVENT DATE: 201907
